FAERS Safety Report 8138021-8 (Version None)
Quarter: 2012Q1

REPORT INFORMATION
  Report Type: 
  Country: None (occurrence: None)
  Receive Date: 20120213
  Receipt Date: 20120131
  Transmission Date: 20120608
  Serious: Yes (Death, Life-Threatening, Hospitalization, Other)
  Sender: FDA-Public Use
  Company Number: ADR-2011-11639

PATIENT
  Age: 17 Year
  Sex: Male

DRUGS (2)
  1. LIORESAL [Suspect]
     Indication: CEREBRAL PALSY
     Dosage: 1730 MCG/DAY
  2. LIORESAL [Suspect]
     Indication: MUSCLE SPASTICITY
     Dosage: 1730 MCG/DAY

REACTIONS (10)
  - URINARY TRACT INFECTION ENTEROCOCCAL [None]
  - DRUG WITHDRAWAL SYNDROME [None]
  - CONVULSION [None]
  - HYPERTENSION [None]
  - MENINGITIS BACTERIAL [None]
  - RESPIRATORY FAILURE [None]
  - DEVICE RELATED INFECTION [None]
  - SHOCK [None]
  - MUSCLE SPASTICITY [None]
  - CARDIO-RESPIRATORY ARREST [None]
